FAERS Safety Report 13050162 (Version 1)
Quarter: 2016Q4

REPORT INFORMATION
  Report Type: Spontaneous
  Country: DE (occurrence: DE)
  Receive Date: 20161221
  Receipt Date: 20161221
  Transmission Date: 20170207
  Serious: Yes (Other)
  Sender: FDA-Public Use
  Company Number: DE-PFIZER INC-2016586276

PATIENT
  Age: 50 Year
  Sex: Male
  Weight: 89 kg

DRUGS (3)
  1. VENLAFAXINE HCL [Suspect]
     Active Substance: VENLAFAXINE HYDROCHLORIDE
     Indication: DEPRESSION
     Dosage: 37.5 MG, 2X/DAY
     Dates: start: 20160126, end: 20160223
  2. BISOPROLOL CT [Concomitant]
     Dosage: 10 MG, UNK
  3. DAFIRO [Concomitant]
     Active Substance: AMLODIPINE\VALSARTAN
     Dosage: 5 MG/160 MG

REACTIONS (2)
  - Sarcoidosis [Not Recovered/Not Resolved]
  - Cough [Not Recovered/Not Resolved]

NARRATIVE: CASE EVENT DATE: 201601
